FAERS Safety Report 7408563-9 (Version None)
Quarter: 2011Q2

REPORT INFORMATION
  Report Type: 
  Country: None (occurrence: None)
  Receive Date: 20110412
  Receipt Date: 20110330
  Transmission Date: 20111010
  Serious: Yes (Death, Hospitalization, Other)
  Sender: FDA-Public Use
  Company Number: JP-BAYER-201015605BYL

PATIENT
  Age: 71 Year
  Sex: Female

DRUGS (8)
  1. GASCON [Concomitant]
     Dosage: UNK
     Route: 048
     Dates: start: 20101113
  2. BLOPRESS [Concomitant]
     Indication: HYPERTENSION
     Dosage: DAILY DOSE 8 MG
     Route: 048
     Dates: end: 20101104
  3. GRAMALIL [Concomitant]
     Indication: DELIRIUM
     Dosage: 25 MG, QD
     Route: 048
     Dates: start: 20101027, end: 20101104
  4. GASMOTIN [Concomitant]
     Dosage: UNK
     Route: 048
     Dates: start: 20101013
  5. FAMOTIDINE [Concomitant]
     Indication: GASTRITIS PROPHYLAXIS
     Dosage: 20 MG, UNK
     Route: 048
     Dates: end: 20101104
  6. NEXAVAR [Suspect]
     Indication: RENAL CELL CARCINOMA
     Dosage: 800 MG, QD
     Route: 048
     Dates: start: 20101016, end: 20101104
  7. NEXAVAR [Suspect]
     Dosage: DAILY DOSE 800 MG
     Route: 048
     Dates: start: 20101113
  8. ADALAT [Concomitant]
     Indication: HYPERTENSION
     Dosage: DAILY DOSE 40 MG
     Route: 048
     Dates: end: 20101104

REACTIONS (4)
  - PNEUMONIA ASPIRATION [None]
  - DUODENAL OBSTRUCTION [None]
  - DIARRHOEA [None]
  - PALMAR-PLANTAR ERYTHRODYSAESTHESIA SYNDROME [None]
